FAERS Safety Report 7641334-7 (Version None)
Quarter: 2011Q3

REPORT INFORMATION
  Report Type: 
  Country: None (occurrence: None)
  Receive Date: 20110728
  Receipt Date: 20110720
  Transmission Date: 20111222
  Serious: Yes (Hospitalization)
  Sender: FDA-Public Use
  Company Number: FR-PFIZER INC-2011170909

PATIENT
  Age: 71 Year
  Sex: Female

DRUGS (12)
  1. ACETAMINOPHEN [Suspect]
     Dosage: 500 MG, UNK
     Route: 048
     Dates: start: 20110407, end: 20110409
  2. FERROUS SULFATE TAB [Suspect]
     Dosage: 80 MG, DAILY
     Dates: start: 20110407, end: 20110413
  3. ACUPAN [Suspect]
     Dosage: 4 DF, DAILY
     Route: 042
     Dates: start: 20110406, end: 20110407
  4. RIVAROXABAN [Suspect]
     Dosage: 10 MG, UNK
     Route: 048
     Dates: start: 20110408, end: 20110409
  5. SERETIDE DISKUS [Concomitant]
     Dosage: 500/50 MG, UNK
     Route: 055
  6. KETOPROFEN [Suspect]
     Dosage: 3 DF, DAILY
     Route: 042
     Dates: start: 20110406, end: 20110407
  7. TRAMADOL HCL [Suspect]
     Dosage: 2 DF, DAILY
     Route: 048
     Dates: start: 20110406, end: 20110409
  8. MOVIPREP [Concomitant]
     Route: 048
  9. PANTOPRAZOLE SODIUM [Suspect]
     Dosage: 20 MG, DAILY
     Route: 048
     Dates: start: 20110406, end: 20110407
  10. CEFAMANDOLE NAFATE [Suspect]
     Dosage: 750 MG, DAILY
     Route: 042
     Dates: start: 20110406, end: 20110407
  11. LOVENOX [Suspect]
     Dosage: 1 DF, DAILY
     Route: 058
     Dates: start: 20110406, end: 20110407
  12. IMOVANE [Concomitant]
     Dosage: 3.5 MG, UNK
     Route: 048

REACTIONS (3)
  - RASH MACULAR [None]
  - PRURITUS [None]
  - BURNING SENSATION [None]
